FAERS Safety Report 12115051 (Version 1)
Quarter: 2016Q1

REPORT INFORMATION
  Report Type: Spontaneous
  Country: US (occurrence: US)
  Receive Date: 20160225
  Receipt Date: 20160225
  Transmission Date: 20160526
  Serious: No
  Sender: FDA-Public Use
  Company Number: US-PERNIX THERAPEUTICS-2016PT000007

PATIENT

DRUGS (6)
  1. AMITRIPTYLINE [Concomitant]
     Active Substance: AMITRIPTYLINE
     Indication: HEADACHE
     Dosage: UNK, PRN
     Dates: start: 20150317
  2. HYDROCODONE BITARTRATE. [Suspect]
     Active Substance: HYDROCODONE BITARTRATE
     Indication: NECK PAIN
  3. HYDROCODONE BITARTRATE. [Suspect]
     Active Substance: HYDROCODONE BITARTRATE
     Indication: HEADACHE
     Dosage: UNK, EVERY 4-6 HOURS AS NEEDED
     Dates: start: 201412
  4. DIAZEPAM. [Concomitant]
     Active Substance: DIAZEPAM
     Dosage: 10 MG, 1-3 TIMES A DAY
     Dates: start: 2013
  5. ESTRING [Suspect]
     Active Substance: ESTRADIOL
     Dosage: 1 DF, EVERY 3 MONTHS
     Route: 067
     Dates: start: 20151214, end: 20151220
  6. AMITRIPTYLINE [Concomitant]
     Active Substance: AMITRIPTYLINE
     Indication: NECK PAIN

REACTIONS (3)
  - Device dislocation [Recovered/Resolved]
  - Feeling abnormal [Recovered/Resolved]
  - Drug ineffective [Recovered/Resolved]

NARRATIVE: CASE EVENT DATE: 20151214
